FAERS Safety Report 7502403-5 (Version None)
Quarter: 2011Q2

REPORT INFORMATION
  Report Type: 
  Country: None (occurrence: None)
  Receive Date: 20110523
  Receipt Date: 20110523
  Transmission Date: 20111010
  Serious: Yes (Life-Threatening, Hospitalization)
  Sender: FDA-Public Use
  Company Number: None

PATIENT
  Age: 67 Year
  Sex: Female
  Weight: 54.4316 kg

DRUGS (1)
  1. AVELOX [Suspect]
     Indication: OROPHARYNGEAL PAIN
     Dosage: 400MG ONCE/DAY ORAL
     Route: 048
     Dates: start: 20110506

REACTIONS (12)
  - HYPERHIDROSIS [None]
  - RADIAL PULSE ABNORMAL [None]
  - RASH ERYTHEMATOUS [None]
  - BLOOD PRESSURE DECREASED [None]
  - ORAL DISCOMFORT [None]
  - PARAESTHESIA [None]
  - BURNING SENSATION [None]
  - DEPRESSED LEVEL OF CONSCIOUSNESS [None]
  - LOSS OF CONSCIOUSNESS [None]
  - PARAESTHESIA ORAL [None]
  - DYSPNOEA [None]
  - TREMOR [None]
